FAERS Safety Report 5625192-8 (Version None)
Quarter: 2008Q1

REPORT INFORMATION
  Report Type: 
  Country: None (occurrence: None)
  Receive Date: 20080213
  Receipt Date: 20080205
  Transmission Date: 20080703
  Serious: Yes (Other)
  Sender: FDA-Public Use
  Company Number: US-GENENTECH-254034

PATIENT
  Sex: Female
  Weight: 68.934 kg

DRUGS (4)
  1. AVASTIN [Suspect]
     Indication: GLIOBLASTOMA MULTIFORME
     Dosage: 600 MG, Q2W
     Route: 042
     Dates: start: 20071108
  2. IRINOTECAN [Concomitant]
     Indication: GLIOBLASTOMA MULTIFORME
  3. ALOXI [Concomitant]
     Indication: DRUG USE FOR UNKNOWN INDICATION
     Dosage: 0.25 MG, Q2W
  4. DECADRON [Concomitant]
     Indication: DRUG USE FOR UNKNOWN INDICATION
     Dosage: UNK, BID

REACTIONS (1)
  - LIVER FUNCTION TEST ABNORMAL [None]
